FAERS Safety Report 24873089 (Version 3)
Quarter: 2025Q2

REPORT INFORMATION
  Report Type: Spontaneous
  Country: JP (occurrence: JP)
  Receive Date: 20250122
  Receipt Date: 20250617
  Transmission Date: 20250716
  Serious: Yes (Other)
  Sender: NOVARTIS
  Company Number: JP-002147023-NVSJ2025JP000971

PATIENT
  Weight: 0.452 kg

DRUGS (2)
  1. CYCLOSPORINE [Suspect]
     Active Substance: CYCLOSPORINE
     Indication: Foetal exposure during pregnancy
     Route: 064
  2. ECULIZUMAB [Suspect]
     Active Substance: ECULIZUMAB
     Indication: Foetal exposure during pregnancy
     Route: 064

REACTIONS (6)
  - Foetal growth restriction [Unknown]
  - Nonreassuring foetal heart rate pattern [Unknown]
  - Baseline foetal heart rate variability disorder [Unknown]
  - Low birth weight baby [Unknown]
  - Premature baby [Unknown]
  - Foetal exposure during pregnancy [Unknown]
